FAERS Safety Report 17800095 (Version 2)
Quarter: 2020Q2

REPORT INFORMATION
  Report Type: Spontaneous
  Country: PL (occurrence: PL)
  Receive Date: 20200518
  Receipt Date: 20200528
  Transmission Date: 20200714
  Serious: Yes (Other)
  Sender: FDA-Public Use
  Company Number: NVSC2020PL132823

PATIENT
  Age: 51 Year
  Sex: Male

DRUGS (7)
  1. OXALIPLATIN. [Suspect]
     Active Substance: OXALIPLATIN
     Dosage: 65 MG/M2
     Route: 065
     Dates: start: 20181026, end: 201912
  2. 5-FLUOROURACIL ^EBEWE^ [Suspect]
     Active Substance: FLUOROURACIL
     Dosage: UNK, (DOSE REDUCED)
     Route: 065
     Dates: start: 2019
  3. OXALIPLATIN. [Suspect]
     Active Substance: OXALIPLATIN
     Indication: COLORECTAL CANCER
     Dosage: UNK
     Route: 065
     Dates: start: 20180301
  4. VECTIBIX [Suspect]
     Active Substance: PANITUMUMAB
     Dosage: UNK, (DOSE REDUCED TO 80 %)
     Route: 065
  5. CALCIUM FOLINATE [Suspect]
     Active Substance: LEUCOVORIN CALCIUM
     Indication: COLORECTAL CANCER
     Dosage: UNK
     Route: 065
     Dates: start: 20180301
  6. 5-FLUOROURACIL ^EBEWE^ [Suspect]
     Active Substance: FLUOROURACIL
     Indication: COLORECTAL CANCER
     Dosage: UNK
     Route: 065
     Dates: start: 20180301
  7. VECTIBIX [Suspect]
     Active Substance: PANITUMUMAB
     Indication: COLORECTAL CANCER
     Dosage: UNK
     Route: 065
     Dates: start: 20180301

REACTIONS (3)
  - Polyneuropathy [Unknown]
  - Skin toxicity [Recovering/Resolving]
  - Therapy partial responder [Unknown]

NARRATIVE: CASE EVENT DATE: 2018
